FAERS Safety Report 5449024-6 (Version None)
Quarter: 2007Q3

REPORT INFORMATION
  Report Type: 
  Country: None (occurrence: None)
  Receive Date: 20070911
  Receipt Date: 20070906
  Transmission Date: 20080115
  Serious: Yes (Other)
  Sender: FDA-Public Use
  Company Number: GB-ALLERGAN-0709754US

PATIENT
  Sex: Female
  Weight: 57.143 kg

DRUGS (1)
  1. DYSPORT [Suspect]
     Indication: MUSCLE SPASTICITY
     Dosage: 1500 UNITS, UNK
     Route: 030

REACTIONS (6)
  - ANXIETY [None]
  - ASTHENIA [None]
  - DYSPHAGIA [None]
  - INCORRECT DOSE ADMINISTERED [None]
  - INFLUENZA LIKE ILLNESS [None]
  - PALPITATIONS [None]
